FAERS Safety Report 7493279-3 (Version None)
Quarter: 2011Q2

REPORT INFORMATION
  Report Type: 
  Country: None (occurrence: None)
  Receive Date: 20110520
  Receipt Date: 20091122
  Transmission Date: 20111010
  Serious: Yes (Death, Other)
  Sender: FDA-Public Use
  Company Number: US-BAYER-201039435NA

PATIENT
  Age: 52 Year
  Sex: Male
  Weight: 81.633 kg

DRUGS (14)
  1. TRASYLOL [Suspect]
     Indication: VENTRICULAR ASSIST DEVICE INSERTION
  2. LIDOCAINE [Concomitant]
     Dosage: 2 MG/MIN
     Route: 042
  3. ANCEF [Concomitant]
     Dosage: 1 G, UNK
     Route: 042
  4. PRONESTYL [Concomitant]
     Dosage: 1 MG/MIN
     Route: 042
  5. SOLU-MEDROL [Concomitant]
     Dosage: UNK
  6. TRASYLOL [Suspect]
     Indication: CORONARY ARTERY BYPASS
     Dosage: 1ML INITIAL TEST DOSE, 200ML LOADING DOSE, NO INFUSION
     Route: 042
     Dates: start: 19950213, end: 19950213
  7. DOPAMINE HCL [Concomitant]
     Dosage: 150 MCG.MIN
     Route: 042
  8. ATENOLOL [Concomitant]
     Dosage: 50 MG, QD
     Route: 048
  9. ACETYLSALICYLIC ACID SRT [Concomitant]
  10. GLYBURIDE [Concomitant]
     Dosage: 1.25 MG, QD
     Route: 048
  11. PROTAMINE SULFATE [Concomitant]
     Dosage: 700 ML, UNK
     Route: 042
  12. VASOTEC [Concomitant]
     Dosage: 2.5 MG, QD
     Route: 048
  13. ISORDIL [Concomitant]
     Dosage: 20 MG, TID
     Route: 048
  14. LEVOPHED [Concomitant]
     Route: 042

REACTIONS (12)
  - FEAR [None]
  - INJURY [None]
  - RENAL INJURY [None]
  - MULTI-ORGAN FAILURE [None]
  - EMOTIONAL DISTRESS [None]
  - STRESS [None]
  - UNEVALUABLE EVENT [None]
  - ANXIETY [None]
  - PAIN [None]
  - DEATH [None]
  - RENAL FAILURE [None]
  - RENAL IMPAIRMENT [None]
